FAERS Safety Report 22003092 (Version 5)
Quarter: 2024Q2

REPORT INFORMATION
  Report Type: Other
  Country: US (occurrence: None)
  Receive Date: 20230217
  Receipt Date: 20240424
  Transmission Date: 20240715
  Serious: Yes (Hospitalization, Other)
  Sender: FDA-Public Use
  Company Number: US-ROCHE-3116760

PATIENT
  Age: 76 Year
  Sex: Female

DRUGS (12)
  1. XOLAIR [Suspect]
     Active Substance: OMALIZUMAB
     Indication: Asthma
     Route: 058
     Dates: start: 20220217
  2. XOLAIR [Suspect]
     Active Substance: OMALIZUMAB
  3. XOLAIR [Suspect]
     Active Substance: OMALIZUMAB
     Indication: Bronchitis chronic
     Route: 058
  4. XOLAIR [Suspect]
     Active Substance: OMALIZUMAB
  5. XOLAIR [Suspect]
     Active Substance: OMALIZUMAB
     Indication: Emphysema
     Route: 058
  6. XOLAIR [Suspect]
     Active Substance: OMALIZUMAB
  7. XOLAIR [Suspect]
     Active Substance: OMALIZUMAB
     Route: 058
  8. XOLAIR [Suspect]
     Active Substance: OMALIZUMAB
  9. XOLAIR [Suspect]
     Active Substance: OMALIZUMAB
     Route: 058
     Dates: start: 2021
  10. XOLAIR [Suspect]
     Active Substance: OMALIZUMAB
  11. BUDESONIDE\FORMOTEROL FUMARATE [Concomitant]
     Active Substance: BUDESONIDE\FORMOTEROL FUMARATE
     Indication: Dyspnoea
     Dosage: RESPIRATORY (INHALATION)
     Route: 055
     Dates: start: 202202
  12. ALBUTEROL [Concomitant]
     Active Substance: ALBUTEROL
     Indication: Dyspnoea
     Dates: start: 202202

REACTIONS (13)
  - Atrial fibrillation [Unknown]
  - COVID-19 [Unknown]
  - Lymphoedema [Unknown]
  - Hypertension [Unknown]
  - Electrolyte imbalance [Unknown]
  - Off label use [Unknown]
  - Influenza [Unknown]
  - Lethargy [Unknown]
  - Dysphonia [Unknown]
  - Headache [Unknown]
  - Tracheomalacia [Unknown]
  - Laryngeal injury [Unknown]
  - Bronchomalacia [Not Recovered/Not Resolved]

NARRATIVE: CASE EVENT DATE: 20210101
